FAERS Safety Report 8215568-7 (Version None)
Quarter: 2012Q1

REPORT INFORMATION
  Report Type: 
  Country: None (occurrence: None)
  Receive Date: 20120316
  Receipt Date: 20120307
  Transmission Date: 20120608
  Serious: Yes (Hospitalization)
  Sender: FDA-Public Use
  Company Number: IT-ROCHE-1046503

PATIENT
  Sex: Female

DRUGS (4)
  1. DEPAKENE [Suspect]
     Indication: AFFECTIVE DISORDER
     Route: 048
  2. HALDOL [Concomitant]
     Indication: PRODUCT USED FOR UNKNOWN INDICATION
  3. FLUPHENAZINE HCL [Concomitant]
     Indication: PRODUCT USED FOR UNKNOWN INDICATION
  4. CLONAZEPAM [Suspect]
     Indication: PRODUCT USED FOR UNKNOWN INDICATION
     Route: 048

REACTIONS (2)
  - BRADYPHRENIA [None]
  - BRADYKINESIA [None]
